FAERS Safety Report 6546216-X (Version None)
Quarter: 2010Q1

REPORT INFORMATION
  Report Type: 
  Country: None (occurrence: None)
  Receive Date: 20100122
  Receipt Date: 20100112
  Transmission Date: 20100710
  Serious: Yes (Other)
  Sender: FDA-Public Use
  Company Number: JP-BAYER-200915112BYL

PATIENT
  Age: 52 Year
  Sex: Male

DRUGS (6)
  1. FLUDARA [Suspect]
     Indication: ADULT T-CELL LYMPHOMA/LEUKAEMIA
     Dosage: AS USED: TOTAL 180 MG/M2
     Route: 065
     Dates: start: 20090601
  2. ACNU [Concomitant]
     Indication: ADULT T-CELL LYMPHOMA/LEUKAEMIA
     Dosage: AS USED: TOTAL 400 MG/M2
     Route: 065
     Dates: start: 20090601
  3. L-PAM [Concomitant]
     Indication: ADULT T-CELL LYMPHOMA/LEUKAEMIA
     Dosage: AS USED: TOTAL 80 MG/M2
     Route: 065
     Dates: start: 20090601
  4. CYCLOSPORINE [Concomitant]
     Indication: PROPHYLAXIS AGAINST GRAFT VERSUS HOST DISEASE
     Route: 065
     Dates: start: 20090625, end: 20090724
  5. CYCLOSPORINE [Concomitant]
     Dosage: TAPERING
     Route: 065
     Dates: start: 20090725, end: 20090824
  6. MYCOPHENOLATE MOFETIL [Concomitant]
     Indication: PROPHYLAXIS AGAINST GRAFT VERSUS HOST DISEASE
     Route: 065
     Dates: start: 20090625, end: 20090725

REACTIONS (7)
  - CARDIAC FAILURE [None]
  - DIARRHOEA [None]
  - GENERALISED OEDEMA [None]
  - GRAFT VERSUS HOST DISEASE [None]
  - HYPOPROTEINAEMIA [None]
  - RENAL IMPAIRMENT [None]
  - VENOOCCLUSIVE LIVER DISEASE [None]
